FAERS Safety Report 21710101 (Version 2)
Quarter: 2022Q4

REPORT INFORMATION
  Report Type: Report from Study
  Country: CA (occurrence: CA)
  Receive Date: 20221211
  Receipt Date: 20221226
  Transmission Date: 20230113
  Serious: Yes (Hospitalization)
  Sender: FDA-Public Use
  Company Number: CA-JNJFOC-20220958899

PATIENT
  Age: 31 Year
  Sex: Female

DRUGS (5)
  1. MACITENTAN [Suspect]
     Active Substance: MACITENTAN
     Indication: Pulmonary hypertension
     Dosage: THERAPY START DATE: 23-SEP-2022
     Route: 048
     Dates: start: 202209
  2. SELEXIPAG [Suspect]
     Active Substance: SELEXIPAG
     Indication: Pulmonary hypertension
     Route: 048
     Dates: start: 20221118, end: 20221201
  3. EPOPROSTENOL SODIUM [Suspect]
     Active Substance: EPOPROSTENOL SODIUM
     Indication: Pulmonary hypertension
     Route: 042
     Dates: start: 20221201
  4. ELIQUIS [Concomitant]
     Active Substance: APIXABAN
  5. ADCIRCA [Concomitant]
     Active Substance: TADALAFIL

REACTIONS (10)
  - Therapy change [Unknown]
  - Haemoptysis [Recovered/Resolved]
  - Epistaxis [Recovered/Resolved]
  - Dyspnoea [Recovering/Resolving]
  - Weight increased [Recovering/Resolving]
  - Abdominal distension [Unknown]
  - Insomnia [Not Recovered/Not Resolved]
  - Restlessness [Not Recovered/Not Resolved]
  - Headache [Not Recovered/Not Resolved]
  - Off label use [Unknown]

NARRATIVE: CASE EVENT DATE: 20220901
